FAERS Safety Report 12917218 (Version 1)
Quarter: 2016Q4

REPORT INFORMATION
  Report Type: Spontaneous
  Country: US (occurrence: US)
  Receive Date: 20161107
  Receipt Date: 20161107
  Transmission Date: 20170207
  Serious: Yes (Hospitalization, Other)
  Sender: FDA-Public Use
  Company Number: US-ZYDUS-012615

PATIENT
  Age: 17 Year
  Sex: Female

DRUGS (1)
  1. MINOCYCLINE [Suspect]
     Active Substance: MINOCYCLINE\MINOCYCLINE HYDROCHLORIDE
     Indication: ACNE
     Route: 065

REACTIONS (13)
  - Pain [Recovering/Resolving]
  - Sensory disturbance [Recovering/Resolving]
  - Antinuclear antibody positive [Recovering/Resolving]
  - Vasculitis necrotising [Recovering/Resolving]
  - Hypoaesthesia [Recovering/Resolving]
  - Nausea [Recovering/Resolving]
  - Asthenia [Recovering/Resolving]
  - C-reactive protein increased [Recovering/Resolving]
  - Brain stem stroke [Recovering/Resolving]
  - Vertigo [Recovering/Resolving]
  - Pain in extremity [Recovering/Resolving]
  - Mononeuropathy multiplex [Recovering/Resolving]
  - Muscular weakness [Recovering/Resolving]
